FAERS Safety Report 24371132 (Version 1)
Quarter: 2024Q3

REPORT INFORMATION
  Report Type: Spontaneous
  Country: IN (occurrence: IN)
  Receive Date: 20240927
  Receipt Date: 20240927
  Transmission Date: 20241017
  Serious: Yes (Other)
  Sender: DR REDDYS
  Company Number: IN-RDY-LIT/IND/24/0014141

PATIENT

DRUGS (2)
  1. CETIRIZINE [Suspect]
     Active Substance: CETIRIZINE HYDROCHLORIDE
     Indication: Pyoderma gangrenosum
  2. AMIKACIN [Concomitant]
     Active Substance: AMIKACIN
     Indication: Pyoderma gangrenosum

REACTIONS (1)
  - Drug ineffective for unapproved indication [Unknown]
